FAERS Safety Report 5815535-4 (Version None)
Quarter: 2008Q3

REPORT INFORMATION
  Report Type: 
  Country: None (occurrence: None)
  Receive Date: 20080716
  Receipt Date: 20080710
  Transmission Date: 20090109
  Serious: Yes (Other)
  Sender: FDA-Public Use
  Company Number: 030445

PATIENT
  Sex: Female

DRUGS (8)
  1. HYDROXYUREA [Suspect]
     Indication: ESSENTIAL THROMBOCYTHAEMIA
     Dosage: 500 MG, QOD, ORAL, 1000 MG, QOD, ORAL
     Route: 048
     Dates: start: 20071101
  2. HYDROXYUREA [Suspect]
     Indication: ESSENTIAL THROMBOCYTHAEMIA
     Dosage: 500 MG, QOD, ORAL, 1000 MG, QOD, ORAL
     Route: 048
     Dates: start: 20071101
  3. ASPIRIN [Concomitant]
  4. LIPITOR [Concomitant]
  5. NEXIUM [Concomitant]
  6. PLAVIX [Concomitant]
  7. XANAX [Concomitant]
  8. ZETIA [Concomitant]

REACTIONS (3)
  - CONVULSION [None]
  - FOOD INTERACTION [None]
  - SYNCOPE [None]
